FAERS Safety Report 21640285 (Version 2)
Quarter: 2022Q4

REPORT INFORMATION
  Report Type: Spontaneous
  Country: FR (occurrence: FR)
  Receive Date: 20221124
  Receipt Date: 20221128
  Transmission Date: 20230112
  Serious: Yes (Hospitalization)
  Sender: FDA-Public Use
  Company Number: None

PATIENT
  Age: 75 Year
  Sex: Female
  Weight: 70 kg

DRUGS (17)
  1. MIANSERIN HYDROCHLORIDE [Suspect]
     Active Substance: MIANSERIN HYDROCHLORIDE
     Indication: Bipolar I disorder
     Dosage: 30 MG, QD
     Route: 048
     Dates: end: 202101
  2. LANSOPRAZOLE [Suspect]
     Active Substance: LANSOPRAZOLE
     Indication: Product used for unknown indication
     Dosage: 30  MG (IN MRNING)
     Route: 065
  3. CYAMEMAZINE [Suspect]
     Active Substance: CYAMEMAZINE
     Indication: Bipolar I disorder
     Dosage: 1 DF, QD
     Route: 048
  4. PRAZEPAM [Suspect]
     Active Substance: PRAZEPAM
     Indication: Bipolar I disorder
     Dosage: 3 DF, QD
     Route: 048
     Dates: end: 202101
  5. BROMAZEPAM [Suspect]
     Active Substance: BROMAZEPAM
     Indication: Bipolar I disorder
     Dosage: 0.5 DF, QD
     Route: 048
     Dates: end: 202101
  6. ATARAX [Suspect]
     Active Substance: HYDROXYZINE HYDROCHLORIDE
     Indication: Bipolar I disorder
     Dosage: UNK
     Route: 048
     Dates: end: 202101
  7. TRIMEPRAZINE [Suspect]
     Active Substance: TRIMEPRAZINE
     Indication: Bipolar I disorder
     Dosage: 5 DRP, QD
     Route: 048
     Dates: end: 202101
  8. IMOVANE [Suspect]
     Active Substance: ZOPICLONE
     Indication: Bipolar I disorder
     Dosage: 1 DF, QD
     Route: 048
     Dates: end: 202101
  9. QUETIAPINE FUMARATE [Suspect]
     Active Substance: QUETIAPINE FUMARATE
     Indication: Bipolar I disorder
     Dosage: UNK
     Route: 048
     Dates: end: 202101
  10. PAROXETINE HYDROCHLORIDE [Suspect]
     Active Substance: PAROXETINE HYDROCHLORIDE
     Indication: Bipolar I disorder
     Dosage: 2 DF, QD
     Route: 048
  11. BROMAZEPAM [Suspect]
     Active Substance: BROMAZEPAM
     Indication: Bipolar I disorder
     Dosage: 0.5 DOSAGE FORM, QD
     Route: 065
  12. ACETYLLEUCINE, L- [Suspect]
     Active Substance: ACETYLLEUCINE, L-
     Indication: Vertigo
     Dosage: UNK, 2 IN THE MORNING , 2 IN THE EVENING
     Route: 065
  13. CRESTOR [Suspect]
     Active Substance: ROSUVASTATIN CALCIUM
     Indication: Product used for unknown indication
     Dosage: UNK , MORNING
     Route: 065
  14. LEVOTHYROXINE [Suspect]
     Active Substance: LEVOTHYROXINE
     Indication: Product used for unknown indication
     Dosage: UNK
     Route: 065
  15. CARTEOLOL [Suspect]
     Active Substance: CARTEOLOL
     Indication: Product used for unknown indication
     Dosage: UNK, MORNING
     Route: 065
  16. FERROUS SULFATE [Suspect]
     Active Substance: FERROUS SULFATE
     Indication: Product used for unknown indication
     Dosage: UNK
     Route: 065
  17. BETAHISTINE [Suspect]
     Active Substance: BETAHISTINE
     Indication: Product used for unknown indication
     Dosage: UNK
     Route: 065

REACTIONS (9)
  - Acute respiratory failure [Recovering/Resolving]
  - Respiratory acidosis [Recovering/Resolving]
  - Acute respiratory failure [Recovering/Resolving]
  - Asthenia [Unknown]
  - Diarrhoea [Unknown]
  - Musculoskeletal stiffness [Unknown]
  - Headache [Unknown]
  - General physical health deterioration [Unknown]
  - Product use in unapproved indication [Unknown]

NARRATIVE: CASE EVENT DATE: 20210113
